FAERS Safety Report 20176958 (Version 3)
Quarter: 2022Q1

REPORT INFORMATION
  Report Type: Other
  Country: CA (occurrence: CA)
  Receive Date: 20211213
  Receipt Date: 20220109
  Transmission Date: 20220423
  Serious: Yes (Hospitalization, Other)
  Sender: FDA-Public Use
  Company Number: CA-APOTEX-2021AP046321

PATIENT
  Age: 17 Year
  Sex: Male

DRUGS (10)
  1. CLONAZEPAM [Suspect]
     Active Substance: CLONAZEPAM
     Indication: Product used for unknown indication
     Dosage: UNK
     Route: 065
  2. CLONAZEPAM [Suspect]
     Active Substance: CLONAZEPAM
     Dosage: 1.5 MILLIGRAM, Q.H.S. WITH TAPERING DOSE AT 0.25 MG DECREASE EVERY 2 WEEKS
     Route: 048
     Dates: start: 202003
  3. CLOZAPINE [Suspect]
     Active Substance: CLOZAPINE
     Indication: Psychotic disorder
     Dosage: 500 MILLIGRAM, Q.H.S.
     Route: 048
     Dates: start: 20200203
  4. CLOZAPINE [Suspect]
     Active Substance: CLOZAPINE
     Indication: Mania
     Dosage: 200 MILLIGRAM, Q.H.S.
     Route: 048
     Dates: start: 202003, end: 20211206
  5. RISPERIDONE [Suspect]
     Active Substance: RISPERIDONE
     Indication: Psychotic disorder
     Dosage: UNK
     Route: 065
  6. RISPERIDONE [Suspect]
     Active Substance: RISPERIDONE
     Indication: Mania
     Dosage: AUGMENTING THE RISPERIDONE WITH LITHIUM UP TO 1200 MILLIGRAM
     Route: 065
     Dates: start: 201912
  7. LITHIUM [Suspect]
     Active Substance: LITHIUM
     Indication: Psychotic disorder
     Dosage: AUGMENTING THE RISPERIDONE WITH LITHIUM UP TO 1200 MILLIGRAM
     Route: 065
     Dates: start: 201912
  8. LITHIUM [Suspect]
     Active Substance: LITHIUM
     Indication: Mania
  9. INTUNIV [Concomitant]
     Active Substance: GUANFACINE HYDROCHLORIDE
     Indication: Attention deficit hyperactivity disorder
     Dosage: AT LOW DOSE
     Route: 065
  10. DIVALPROEX SODIUM [Concomitant]
     Active Substance: DIVALPROEX SODIUM
     Indication: Product used for unknown indication
     Dosage: 500 MILLIGRAM, BID
     Route: 048

REACTIONS (4)
  - Neutropenia [Recovered/Resolved]
  - Drug ineffective [Unknown]
  - Product use issue [Unknown]
  - White blood cell count decreased [Recovered/Resolved]

NARRATIVE: CASE EVENT DATE: 20200203
